FAERS Safety Report 20131801 (Version 1)
Quarter: 2021Q4

REPORT INFORMATION
  Report Type: Spontaneous
  Country: US (occurrence: US)
  Receive Date: 20211130
  Receipt Date: 20211130
  Transmission Date: 20220304
  Serious: No
  Sender: FDA-Public Use
  Company Number: US-MYLANLABS-2021M1067680

PATIENT
  Sex: Male
  Weight: 79 kg

DRUGS (3)
  1. NITROGLYCERIN TRANSDERMAL DELIVERY SYSTEM [Suspect]
     Active Substance: NITROGLYCERIN
     Indication: Product used for unknown indication
     Dosage: 0.4 MILLIGRAM, QH
     Route: 062
  2. PRASUGREL                          /05503602/ [Concomitant]
     Indication: Anticoagulant therapy
     Dosage: UNK
  3. EQUATE                             /00002701/ [Concomitant]
     Indication: Hypersensitivity
     Dosage: 4 DOSAGE FORM

REACTIONS (7)
  - Application site erythema [Not Recovered/Not Resolved]
  - Application site pruritus [Not Recovered/Not Resolved]
  - Application site pain [Not Recovered/Not Resolved]
  - Application site swelling [Not Recovered/Not Resolved]
  - Application site hypersensitivity [Unknown]
  - Application site discolouration [Unknown]
  - Application site haemorrhage [Unknown]
